FAERS Safety Report 8933721 (Version 1)
Quarter: 2012Q4

REPORT INFORMATION
  Report Type: 
  Country: PL (occurrence: PL)
  Receive Date: 20121129
  Receipt Date: 20121129
  Transmission Date: 20130627
  Serious: Yes (Other)
  Sender: FDA-Public Use
  Company Number: PL-JNJFOC-20121113965

PATIENT

DRUGS (6)
  1. XARELTO [Suspect]
     Indication: ATRIAL THROMBOSIS
     Route: 048
  2. XARELTO [Suspect]
     Indication: ATRIAL FIBRILLATION
     Route: 048
  3. XARELTO [Suspect]
     Indication: CEREBROVASCULAR ACCIDENT PROPHYLAXIS
     Route: 048
  4. ACETYLSALICYLIC ACID [Suspect]
     Indication: ATRIAL FIBRILLATION
     Dosage: {=100 mg
     Route: 065
  5. ACETYLSALICYLIC ACID [Suspect]
     Indication: CEREBROVASCULAR ACCIDENT PROPHYLAXIS
     Dosage: {=100 mg
     Route: 065
  6. ACETYLSALICYLIC ACID [Suspect]
     Indication: ATRIAL THROMBOSIS
     Dosage: {=100 mg
     Route: 065

REACTIONS (1)
  - Atrial thrombosis [Unknown]
